FAERS Safety Report 4888245-8 (Version None)
Quarter: 2006Q1

REPORT INFORMATION
  Report Type: 
  Country: None (occurrence: None)
  Receive Date: 20060123
  Receipt Date: 20060116
  Transmission Date: 20060701
  Serious: Yes (Life-Threatening, Hospitalization)
  Sender: FDA-Public Use
  Company Number: PHHO2006BE01074

PATIENT
  Age: 64 Year
  Sex: Male

DRUGS (5)
  1. RAD [Suspect]
     Indication: HEART TRANSPLANT
     Dosage: 1.25 MG/DAY
     Dates: start: 20051227, end: 20060107
  2. NEORAL [Suspect]
     Indication: HEART TRANSPLANT
     Dates: start: 20051227
  3. CORTICOSTEROIDS [Suspect]
     Indication: HEART TRANSPLANT
  4. SOLU-MEDROL [Concomitant]
  5. CLEXANE [Concomitant]

REACTIONS (10)
  - ANURIA [None]
  - APATHY [None]
  - C-REACTIVE PROTEIN INCREASED [None]
  - CONFUSIONAL STATE [None]
  - DELIRIUM [None]
  - EPILEPSY [None]
  - HYPERAMMONAEMIA [None]
  - RENAL FAILURE [None]
  - SEPSIS [None]
  - URINARY TRACT INFECTION [None]
